FAERS Safety Report 15589642 (Version 1)
Quarter: 2018Q4

REPORT INFORMATION
  Report Type: Spontaneous
  Country: FR (occurrence: FR)
  Receive Date: 20181106
  Receipt Date: 20181106
  Transmission Date: 20190205
  Serious: Yes (Death)
  Sender: FDA-Public Use
  Company Number: FR-ASTRAZENECA-2018SF42684

PATIENT
  Age: 71 Year
  Sex: Male
  Weight: 112 kg

DRUGS (3)
  1. BRILIQUE [Suspect]
     Active Substance: TICAGRELOR
     Indication: ACUTE CORONARY SYNDROME
     Dosage: 180.0MG UNKNOWN
     Route: 048
     Dates: start: 20181015, end: 20181015
  2. LOVENOX [Suspect]
     Active Substance: ENOXAPARIN SODIUM
     Indication: ACUTE CORONARY SYNDROME
     Dosage: 3000.0IU UNKNOWN
     Route: 042
     Dates: start: 20181015, end: 20181015
  3. ASPEGIC (ACETYLSALICYLATE LYSINE, GLYCINE) [Suspect]
     Active Substance: ASPIRIN DL-LYSINE\GLYCINE
     Indication: ACUTE CORONARY SYNDROME
     Dosage: 250.0MG UNKNOWN
     Route: 042
     Dates: start: 20181015, end: 20181015

REACTIONS (1)
  - Cerebral haemorrhage [Fatal]

NARRATIVE: CASE EVENT DATE: 20181015
